FAERS Safety Report 15155897 (Version 1)
Quarter: 2018Q3

REPORT INFORMATION
  Report Type: Spontaneous
  Country: NL (occurrence: NL)
  Receive Date: 20180717
  Receipt Date: 20180717
  Transmission Date: 20181010
  Serious: Yes (Life-Threatening, Hospitalization, Other)
  Sender: FDA-Public Use
  Company Number: NL-US WORLDMEDS, LLC-STA_00019532

PATIENT
  Age: 81 Year
  Sex: Female

DRUGS (1)
  1. APOMORPHINE HYDROCHLORIDE [Suspect]
     Active Substance: APOMORPHINE HYDROCHLORIDE
     Indication: PARKINSON^S DISEASE
     Dosage: 3 MG/HR DURING DAY (12 HOURS) BOLUS 1.65MG MAX. TWICE DAILY, SUBCUTANEOUSLY FOR
     Route: 058
     Dates: start: 20130214

REACTIONS (1)
  - Pulmonary haemorrhage [Not Recovered/Not Resolved]

NARRATIVE: CASE EVENT DATE: 201408
